FAERS Safety Report 8455237-1 (Version None)
Quarter: 2012Q2

REPORT INFORMATION
  Report Type: 
  Country: None (occurrence: None)
  Receive Date: 20120621
  Receipt Date: 20120615
  Transmission Date: 20120825
  Serious: No
  Sender: FDA-Public Use
  Company Number: US-B.I. PHARMACEUTICALS,INC./RIDGEFIELD-2011-BP-11534BP

PATIENT
  Sex: Female

DRUGS (12)
  1. FISH OIL [Concomitant]
     Indication: PROPHYLAXIS
  2. NORVASC [Concomitant]
     Indication: HYPERTENSION
  3. SYNTHROID [Concomitant]
     Indication: THYROID DISORDER
     Dates: start: 20020101
  4. FISH OIL [Concomitant]
     Indication: VITAMIN SUPPLEMENTATION
  5. PRADAXA [Suspect]
     Indication: ANTICOAGULANT THERAPY
     Dosage: 300 MG
     Route: 048
     Dates: start: 20110201
  6. FOSAMAX [Concomitant]
     Indication: BONE DISORDER
  7. LISINOPRIL [Concomitant]
     Indication: HYPERTENSION
     Dosage: 10 MG
     Route: 048
     Dates: start: 20111101
  8. ATENOLOL [Concomitant]
     Indication: HYPERTENSION
     Dosage: 50 MG
     Route: 048
     Dates: start: 20070101
  9. PRADAXA [Suspect]
     Indication: ATRIAL FIBRILLATION
  10. MULTI-VITAMIN [Concomitant]
     Indication: VITAMIN SUPPLEMENTATION
  11. APRACLONIDINE HYDROCHLORIDE [Concomitant]
     Indication: HYPERTENSION
     Dosage: 5 MG
     Route: 048
     Dates: start: 20070101
  12. OSTEO BI FLEX [Concomitant]
     Indication: VITAMIN SUPPLEMENTATION

REACTIONS (5)
  - DIZZINESS [None]
  - ABDOMINAL DISTENSION [None]
  - SKIN LESION [None]
  - OESOPHAGEAL SPASM [None]
  - DYSPEPSIA [None]
